FAERS Safety Report 10996087 (Version 2)
Quarter: 2015Q2

REPORT INFORMATION
  Report Type: Spontaneous
  Country: US (occurrence: US)
  Receive Date: 20150407
  Receipt Date: 20150409
  Transmission Date: 20150821
  Serious: No
  Sender: FDA-Public Use
  Company Number: US-009507513-1504USA002061

PATIENT
  Age: 34 Year
  Sex: Female

DRUGS (2)
  1. NEXPLANON [Suspect]
     Active Substance: ETONOGESTREL
     Dosage: 68MG 1 ROD, UNK
     Route: 059
     Dates: end: 20150223
  2. NEXPLANON [Suspect]
     Active Substance: ETONOGESTREL
     Indication: CONTRACEPTION
     Dosage: 68MG 1 ROD, UNK
     Route: 059
     Dates: start: 20150223

REACTIONS (5)
  - Incision site infection [Recovered/Resolved]
  - Incision site erythema [Unknown]
  - Incision site swelling [Unknown]
  - Implant site swelling [Unknown]
  - Implant site erythema [Unknown]

NARRATIVE: CASE EVENT DATE: 2015
